FAERS Safety Report 22265038 (Version 2)
Quarter: 2023Q2

REPORT INFORMATION
  Report Type: Report from Study
  Country: US (occurrence: US)
  Receive Date: 20230428
  Receipt Date: 20230619
  Transmission Date: 20230722
  Serious: Yes (Hospitalization)
  Sender: FDA-Public Use
  Company Number: US-ABBVIE-4703971

PATIENT
  Age: 85 Year
  Sex: Female
  Weight: 58.059 kg

DRUGS (1)
  1. HUMIRA [Suspect]
     Active Substance: ADALIMUMAB
     Indication: Rheumatoid arthritis
     Dosage: FORM STRENGTH: 40 MILLIGRAM, CITRATE FREE
     Route: 058
     Dates: start: 20221004

REACTIONS (5)
  - Illness [Unknown]
  - Productive cough [Recovered/Resolved]
  - Musculoskeletal disorder [Unknown]
  - Foot deformity [Unknown]
  - Wrist deformity [Unknown]

NARRATIVE: CASE EVENT DATE: 20230301
